FAERS Safety Report 17959628 (Version 2)
Quarter: 2020Q3

REPORT INFORMATION
  Report Type: Spontaneous
  Country: US (occurrence: US)
  Receive Date: 20200630
  Receipt Date: 20200708
  Transmission Date: 20201103
  Serious: No
  Sender: FDA-Public Use
  Company Number: US-GILEAD-2020-0476725

PATIENT
  Age: 31 Year
  Sex: Female

DRUGS (2)
  1. SOFOSBUVIR;VELPATASVIR [Suspect]
     Active Substance: SOFOSBUVIR\VELPATASVIR
     Indication: CHRONIC HEPATITIS C
     Dosage: 1 DOSAGE FORM, QD
     Route: 048
     Dates: start: 20200616
  2. SUBLOCADE [Concomitant]
     Active Substance: BUPRENORPHINE
     Dosage: UNK

REACTIONS (5)
  - Depression [Not Recovered/Not Resolved]
  - Vomiting [Recovered/Resolved]
  - Maternal exposure during pregnancy [Recovered/Resolved]
  - Nausea [Not Recovered/Not Resolved]
  - Emotional disorder [Not Recovered/Not Resolved]

NARRATIVE: CASE EVENT DATE: 20200617
